FAERS Safety Report 4558102-5 (Version None)
Quarter: 2005Q1

REPORT INFORMATION
  Report Type: 
  Country: None (occurrence: None)
  Receive Date: 20050121
  Receipt Date: 20041110
  Transmission Date: 20050727
  Serious: No
  Sender: FDA-Public Use
  Company Number: US-BRISTOL-MYERS SQUIBB COMPANY-12761359

PATIENT
  Age: 54 Year
  Sex: Male

DRUGS (2)
  1. SERZONE [Suspect]
     Dosage: DURATION OF THERAPY:  OVER 5 YEARS
     Route: 048
  2. RESTORIL [Concomitant]

REACTIONS (1)
  - BLADDER HYPERTROPHY [None]
